FAERS Safety Report 10401897 (Version 1)
Quarter: 2014Q3

REPORT INFORMATION
  Report Type: Spontaneous
  Country: US (occurrence: None)
  Receive Date: 20140820
  Receipt Date: 20140820
  Transmission Date: 20150326
  Serious: No
  Sender: FDA-Public Use
  Company Number: None

PATIENT
  Age: 28 Year
  Sex: Male
  Weight: 68.04 kg

DRUGS (1)
  1. ONRELTEA 0.33% GALDERMA [Suspect]
     Active Substance: BRIMONIDINE\BRIMONIDINE TARTRATE
     Indication: ROSACEA
     Dates: start: 20140809, end: 20140815

REACTIONS (5)
  - Burning sensation [None]
  - Condition aggravated [None]
  - Rebound effect [None]
  - Flushing [None]
  - Erythema [None]

NARRATIVE: CASE EVENT DATE: 20140818
